FAERS Safety Report 7641252-4 (Version None)
Quarter: 2011Q3

REPORT INFORMATION
  Report Type: 
  Country: None (occurrence: None)
  Receive Date: 20110728
  Receipt Date: 20110719
  Transmission Date: 20111222
  Serious: Yes (Death)
  Sender: FDA-Public Use
  Company Number: US-SANOFI-AVENTIS-2011SA046609

PATIENT
  Sex: Male

DRUGS (1)
  1. ZOLPIDEM TARTRATE [Suspect]
     Dosage: TOOK AT NIGHT
     Route: 048
     Dates: end: 20110715

REACTIONS (2)
  - COMPLETED SUICIDE [None]
  - LOSS OF EMPLOYMENT [None]
